FAERS Safety Report 8889317 (Version 4)
Quarter: 2012Q4

REPORT INFORMATION
  Report Type: Report from Study
  Country: FR (occurrence: FR)
  Receive Date: 20121106
  Receipt Date: 20121230
  Transmission Date: 20130627
  Serious: Yes (Hospitalization)
  Sender: FDA-Public Use
  Company Number: FR-UCBSA-062171

PATIENT
  Age: 52 Year
  Sex: Male
  Weight: 117 kg

DRUGS (9)
  1. CIMZIA [Suspect]
     Indication: RHEUMATOID ARTHRITIS
     Dosage: 400 MG EVERY TWO WEEKS AND THEN 200 MG EVERY TWO WEEKS
     Route: 058
     Dates: start: 20120125, end: 20121122
  2. SPECIAFOLDINE [Concomitant]
     Indication: PROPHYLAXIS
     Dates: start: 200912
  3. SPECIAFOLDINE [Concomitant]
     Indication: PROPHYLAXIS
     Dosage: 20 MG
     Dates: start: 20121006
  4. METHOTREXATE [Concomitant]
     Indication: RHEUMATOID ARTHRITIS
     Route: 048
     Dates: start: 200912
  5. METHOTREXATE [Concomitant]
     Indication: RHEUMATOID ARTHRITIS
     Dates: start: 20121115
  6. APRANAX [Concomitant]
     Indication: RHEUMATOID ARTHRITIS
     Route: 048
     Dates: start: 20020112
  7. BIPRETERAX [Concomitant]
     Indication: HYPERTENSION
     Dosage: DRUG STRENGTH: 10MG/2.5MG
     Dates: start: 20110706
  8. BIPRETERAX [Concomitant]
     Indication: CARDIAC FAILURE
     Dosage: DRUG STRENGTH: 10MG/2.5MG
     Dates: start: 20110706
  9. UVEDOSE [Concomitant]
     Indication: OSTEOPOROSIS PROPHYLAXIS
     Dosage: ONE AMPOULE EVERY TWO MONTHS
     Dates: start: 2008

REACTIONS (4)
  - Atrial flutter [Recovered/Resolved]
  - Asthenia [Unknown]
  - Tetany [Unknown]
  - Adverse event [Unknown]
